FAERS Safety Report 8632449 (Version 3)
Quarter: 2014Q1

REPORT INFORMATION
  Report Type: Spontaneous
  Country: US (occurrence: US)
  Receive Date: 20120625
  Receipt Date: 20140228
  Transmission Date: 20141002
  Serious: Yes (Hospitalization)
  Sender: FDA-Public Use
  Company Number: US-BAYER-2012-060874

PATIENT
  Age: 36 Year
  Sex: Female
  Weight: 72.11 kg

DRUGS (7)
  1. YAZ [Suspect]
     Indication: ACNE
     Dosage: UNK
     Dates: start: 200406, end: 201109
  2. YAZ [Suspect]
     Indication: CONTRACEPTION
  3. EFFEXOR [Concomitant]
     Dosage: UNK
     Dates: start: 20110728
  4. ALEVE [Concomitant]
     Dosage: UNK
  5. VICODIN [Concomitant]
     Dosage: 7.5-750 MG, UNK
     Route: 048
     Dates: start: 20110805
  6. ALPRAZOLAM [Concomitant]
     Dosage: 1 MG, UNK
     Route: 048
     Dates: start: 20110805
  7. HYDROCODONE W/ACETAMINOPHEN [Concomitant]
     Dosage: 7.5-750 MG

REACTIONS (3)
  - Deep vein thrombosis [None]
  - Pain [None]
  - Pain [None]
